FAERS Safety Report 10093375 (Version 1)
Quarter: 2014Q2

REPORT INFORMATION
  Report Type: Spontaneous
  Country: US (occurrence: US)
  Receive Date: 20140421
  Receipt Date: 20140421
  Transmission Date: 20141212
  Serious: No
  Sender: FDA-Public Use
  Company Number: US-SA-2013SA125260

PATIENT
  Age: 55 Year
  Sex: Female

DRUGS (3)
  1. ALLEGRA [Suspect]
     Indication: NASAL CONGESTION
     Route: 048
     Dates: start: 20131124
  2. ALLEGRA [Suspect]
     Indication: SNEEZING
     Route: 048
     Dates: start: 20131124
  3. SUDAFED [Concomitant]

REACTIONS (5)
  - Nasal congestion [Recovering/Resolving]
  - Rhinorrhoea [Recovering/Resolving]
  - Sneezing [Recovering/Resolving]
  - Dyspnoea [Recovering/Resolving]
  - Extra dose administered [Unknown]
